FAERS Safety Report 6494930-7 (Version None)
Quarter: 2009Q4

REPORT INFORMATION
  Report Type: 
  Country: None (occurrence: None)
  Receive Date: 20091214
  Receipt Date: 20090402
  Transmission Date: 20100525
  Serious: No
  Sender: FDA-Public Use
  Company Number: US-BRISTOL-MYERS SQUIBB COMPANY-14582100

PATIENT

DRUGS (1)
  1. ABILIFY [Suspect]
     Indication: MAJOR DEPRESSION
     Dosage: ALSO TAKEN 5MG + 10MG.

REACTIONS (1)
  - DRUG EFFECT DECREASED [None]
